FAERS Safety Report 13695035 (Version 2)
Quarter: 2019Q4

REPORT INFORMATION
  Report Type: Spontaneous
  Country: US (occurrence: US)
  Receive Date: 20170627
  Receipt Date: 20191230
  Transmission Date: 20200122
  Serious: Yes (Other)
  Sender: FDA-Public Use
  Company Number: US-BAYER-2017-117753

PATIENT
  Sex: Female

DRUGS (1)
  1. EOVIST [Suspect]
     Active Substance: GADOXETATE DISODIUM
     Indication: MAGNETIC RESONANCE IMAGING LIVER
     Dosage: 17 ML, ONCE
     Dates: start: 20161230, end: 20161230

REACTIONS (21)
  - Ocular hyperaemia [None]
  - Skin fibrosis [None]
  - Gadolinium deposition disease [None]
  - Contrast media deposition [None]
  - Incorrect dose administered [None]
  - Feeling abnormal [None]
  - Muscle contracture [None]
  - Neuropathy peripheral [None]
  - Dyspnoea [None]
  - Bone pain [None]
  - Musculoskeletal stiffness [None]
  - Blood pressure decreased [None]
  - Pain [Not Recovered/Not Resolved]
  - Nontherapeutic agent urine positive [Not Recovered/Not Resolved]
  - Muscle spasms [None]
  - Dysgeusia [None]
  - Soft tissue haemorrhage [None]
  - Musculoskeletal disorder [None]
  - Myalgia [None]
  - Unevaluable event [None]
  - Peripheral swelling [None]

NARRATIVE: CASE EVENT DATE: 2017
